FAERS Safety Report 5803938-3 (Version None)
Quarter: 2008Q3

REPORT INFORMATION
  Report Type: 
  Country: None (occurrence: None)
  Receive Date: 20080703
  Receipt Date: 20080618
  Transmission Date: 20090109
  Serious: Yes (Death, Hospitalization)
  Sender: FDA-Public Use
  Company Number: 2007002543

PATIENT
  Age: 76 Year
  Sex: Female

DRUGS (10)
  1. ERLOTINIB (ERLOTINIB HCL) (TABLET) (ERLOTINIB HCL) [Suspect]
     Indication: PANCREATIC CARCINOMA METASTATIC
     Dosage: (100 MG, QD), ORAL
     Route: 048
     Dates: start: 20071015
  2. GEMCITABINE [Suspect]
     Indication: PANCREATIC CARCINOMA METASTATIC
     Dosage: (1000 MG/M2), INTRAVENOUS
     Route: 042
     Dates: start: 20071015
  3. LOPERAMIDA [Concomitant]
  4. EPOETIN BETA (EPOETIN BETA) [Concomitant]
  5. NEUPOGEN [Concomitant]
  6. BUPRENORFINE HYDROCHLORIDE [Concomitant]
  7. METAMIZOL MAGNESIUM [Concomitant]
  8. FENTANILO [Concomitant]
  9. ENOXAPARIN SODIUM [Concomitant]
  10. LORAZEPAM [Concomitant]

REACTIONS (7)
  - ANAEMIA [None]
  - DIARRHOEA [None]
  - GASTROINTESTINAL TOXICITY [None]
  - MALIGNANT NEOPLASM PROGRESSION [None]
  - NAUSEA [None]
  - PANCREATIC CARCINOMA [None]
  - VOMITING [None]
